FAERS Safety Report 6804998-3 (Version None)
Quarter: 2010Q2

REPORT INFORMATION
  Report Type: 
  Country: None (occurrence: None)
  Receive Date: 20100628
  Receipt Date: 20070810
  Transmission Date: 20101027
  Serious: No
  Sender: FDA-Public Use
  Company Number: US-PFIZER INC-2007067165

PATIENT
  Sex: Female

DRUGS (1)
  1. XALATAN [Suspect]
     Indication: INTRAOCULAR PRESSURE INCREASED
     Dates: start: 20050101

REACTIONS (5)
  - CONJUNCTIVITIS [None]
  - EYE IRRITATION [None]
  - PIGMENTATION DISORDER [None]
  - THROAT IRRITATION [None]
  - WHEEZING [None]
